FAERS Safety Report 4383915-2 (Version None)
Quarter: 2004Q2

REPORT INFORMATION
  Report Type: 
  Country: None (occurrence: None)
  Receive Date: 20040621
  Receipt Date: 20040608
  Transmission Date: 20050107
  Serious: Yes (Hospitalization, Other)
  Sender: FDA-Public Use
  Company Number: CA-JNJFOC-20040500468

PATIENT
  Age: 54 Year
  Sex: Male
  Weight: 81.6475 kg

DRUGS (1)
  1. TOPAMAX [Suspect]
     Indication: INTERCOSTAL NEURALGIA
     Dosage: 25 MG, 3 IN 1 DAY
     Dates: start: 20030821, end: 20030825

REACTIONS (1)
  - SUBDURAL HAEMATOMA [None]
